FAERS Safety Report 6236995-3 (Version None)
Quarter: 2009Q2

REPORT INFORMATION
  Report Type: 
  Country: None (occurrence: None)
  Receive Date: 20090619
  Receipt Date: 20090424
  Transmission Date: 20091009
  Serious: No
  Sender: FDA-Public Use
  Company Number: US-ASTRAZENECA-2009UW06582

PATIENT
  Age: 60 Year
  Sex: Female
  Weight: 68.9 kg

DRUGS (3)
  1. SYMBICORT [Suspect]
     Indication: ASTHMA
     Dosage: 640 MCG
     Route: 055
     Dates: start: 20071001
  2. ALLEGRA [Concomitant]
  3. LOTREL [Concomitant]

REACTIONS (4)
  - CERVICAL DYSPLASIA [None]
  - DRUG INEFFECTIVE [None]
  - LOOP ELECTROSURGICAL EXCISION PROCEDURE [None]
  - THROAT IRRITATION [None]
